FAERS Safety Report 13968045 (Version 1)
Quarter: 2017Q3

REPORT INFORMATION
  Report Type: Report from Study
  Country: AU (occurrence: AU)
  Receive Date: 20170914
  Receipt Date: 20170914
  Transmission Date: 20171128
  Serious: Yes (Other)
  Sender: FDA-Public Use
  Company Number: AU-ASTRAZENECA-2017SE70816

PATIENT
  Age: 934 Month
  Sex: Female

DRUGS (3)
  1. OSIMERTINIB. [Suspect]
     Active Substance: OSIMERTINIB
     Route: 048
  2. GEFITINIB. [Suspect]
     Active Substance: GEFITINIB
     Indication: METASTATIC SALIVARY GLAND CANCER
     Dosage: 250.0MG UNKNOWN
     Route: 048
     Dates: start: 201606, end: 201707
  3. GEFITINIB. [Suspect]
     Active Substance: GEFITINIB
     Indication: EGFR GENE MUTATION
     Dosage: 250.0MG UNKNOWN
     Route: 048
     Dates: start: 201606, end: 201707

REACTIONS (3)
  - Off label use [Unknown]
  - Metastases to meninges [Unknown]
  - Metastases to central nervous system [Unknown]

NARRATIVE: CASE EVENT DATE: 201707
